FAERS Safety Report 19358965 (Version 1)
Quarter: 2021Q2

REPORT INFORMATION
  Report Type: Spontaneous
  Country: JP (occurrence: JP)
  Receive Date: 20210601
  Receipt Date: 20210601
  Transmission Date: 20210717
  Serious: Yes (Hospitalization)
  Sender: FDA-Public Use
  Company Number: JP-ROCHE-2835855

PATIENT
  Age: 56 Year
  Sex: Female

DRUGS (2)
  1. HERCEPTIN [Suspect]
     Active Substance: TRASTUZUMAB
     Indication: BREAST CANCER METASTATIC
     Route: 041
     Dates: start: 20210514, end: 20210514
  2. PERJETA [Suspect]
     Active Substance: PERTUZUMAB
     Indication: BREAST CANCER METASTATIC
     Dosage: STRENGTH: 420MG/14ML
     Route: 041

REACTIONS (5)
  - Nausea [Recovered/Resolved]
  - Blood pressure increased [Recovered/Resolved]
  - Vomiting [Recovered/Resolved]
  - Anaphylactic reaction [Recovered/Resolved]
  - Oxygen saturation decreased [Recovered/Resolved]

NARRATIVE: CASE EVENT DATE: 20210514
